FAERS Safety Report 18259575 (Version 3)
Quarter: 2020Q3

REPORT INFORMATION
  Report Type: Report from Study
  Country: None (occurrence: US)
  Receive Date: 20200911
  Receipt Date: 20200917
  Transmission Date: 20201103
  Serious: Yes (Other)
  Sender: FDA-Public Use
  Company Number: US-ABBVIE-20K-163-3385345-00

PATIENT
  Age: 57 Year
  Sex: Male

DRUGS (1)
  1. HUMIRA [Suspect]
     Active Substance: ADALIMUMAB
     Indication: PSORIASIS
     Route: 058
     Dates: start: 201903, end: 201912

REACTIONS (3)
  - Intervertebral disc protrusion [Recovering/Resolving]
  - Post procedural infection [Unknown]
  - Post procedural infection [Unknown]

NARRATIVE: CASE EVENT DATE: 201910
